FAERS Safety Report 8408673-3 (Version None)
Quarter: 2012Q2

REPORT INFORMATION
  Report Type: 
  Country: None (occurrence: None)
  Receive Date: 20120604
  Receipt Date: 20120202
  Transmission Date: 20120825
  Serious: No
  Sender: FDA-Public Use
  Company Number: US-NOVEN-12US004038

PATIENT
  Age: 7 Year
  Sex: Female
  Weight: 22.676 kg

DRUGS (1)
  1. DAYTRANA [Suspect]
     Indication: ATTENTION DEFICIT/HYPERACTIVITY DISORDER
     Dosage: 15 MG, QD
     Route: 062
     Dates: start: 20090101

REACTIONS (7)
  - DISTURBANCE IN ATTENTION [None]
  - INCORRECT STORAGE OF DRUG [None]
  - DRUG INEFFECTIVE [None]
  - OFF LABEL USE [None]
  - INSOMNIA [None]
  - DISTURBANCE IN SOCIAL BEHAVIOUR [None]
  - PRODUCT QUALITY ISSUE [None]
